FAERS Safety Report 7289972-8 (Version None)
Quarter: 2011Q1

REPORT INFORMATION
  Report Type: 
  Country: None (occurrence: None)
  Receive Date: 20110214
  Receipt Date: 20110201
  Transmission Date: 20110831
  Serious: Yes (Other)
  Sender: FDA-Public Use
  Company Number: US-ELI_LILLY_AND_COMPANY-US201011006940

PATIENT
  Sex: Female

DRUGS (2)
  1. FORTEO [Suspect]
     Indication: BONE DISORDER
     Dosage: 20 UG, DAILY (1/D)
  2. ACTONEL [Concomitant]
     Dosage: UNK, UNKNOWN
     Route: 065
     Dates: start: 19990101

REACTIONS (12)
  - GASTROINTESTINAL DISORDER [None]
  - URINARY TRACT INFECTION [None]
  - MEMORY IMPAIRMENT [None]
  - ARTHRALGIA [None]
  - PAIN [None]
  - VISUAL IMPAIRMENT [None]
  - DRY EYE [None]
  - NAUSEA [None]
  - URINARY RETENTION [None]
  - FATIGUE [None]
  - OCULAR DISCOMFORT [None]
  - MACULAR DEGENERATION [None]
